FAERS Safety Report 10083913 (Version 1)
Quarter: 2014Q2

REPORT INFORMATION
  Report Type: Spontaneous
  Country: JP (occurrence: None)
  Receive Date: 20140415
  Receipt Date: 20140415
  Transmission Date: 20141212
  Serious: Yes (Hospitalization)
  Sender: FDA-Public Use
  Company Number: FK201401298

PATIENT
  Age: 77 Year
  Sex: Female

DRUGS (2)
  1. CISPLATIN [Suspect]
     Indication: GASTRIC CANCER STAGE IV
  2. GIMERACIL/OTERACIL/TEGAFUR [Suspect]
     Indication: GASTRIC CANCER STAGE IV

REACTIONS (5)
  - Emphysematous cholecystitis [None]
  - Anaemia [None]
  - Thrombocytopenia [None]
  - Clostridium test positive [None]
  - Ischaemia [None]
